FAERS Safety Report 21056513 (Version 6)
Quarter: 2023Q2

REPORT INFORMATION
  Report Type: Spontaneous
  Country: JP (occurrence: JP)
  Receive Date: 20220708
  Receipt Date: 20230406
  Transmission Date: 20230721
  Serious: Yes (Death, Life-Threatening, Other)
  Sender: FDA-Public Use
  Company Number: JP-MSD-M2022-26468

PATIENT
  Sex: Female
  Weight: 63 kg

DRUGS (2)
  1. KEYTRUDA [Suspect]
     Active Substance: PEMBROLIZUMAB
     Indication: Colon cancer stage IV
     Dosage: 200 MILLIGRAM
     Route: 041
     Dates: start: 20220412, end: 20220412
  2. PREDNISOLONE [Concomitant]
     Active Substance: PREDNISOLONE
     Indication: Paraneoplastic pemphigus
     Dosage: 20 MILLIGRAM, QD
     Route: 048
     Dates: start: 20220319, end: 20220530

REACTIONS (4)
  - Sepsis [Fatal]
  - Toxic epidermal necrolysis [Fatal]
  - Oculomucocutaneous syndrome [Fatal]
  - Drug ineffective [Unknown]

NARRATIVE: CASE EVENT DATE: 20220101
